FAERS Safety Report 10145916 (Version 1)
Quarter: 2014Q2

REPORT INFORMATION
  Report Type: Spontaneous
  Country: US (occurrence: US)
  Receive Date: 20140501
  Receipt Date: 20140501
  Transmission Date: 20141212
  Serious: No
  Sender: FDA-Public Use
  Company Number: US-ABBVIE-13P-163-1091585-00

PATIENT
  Age: 80 Year
  Sex: Female
  Weight: 54.48 kg

DRUGS (4)
  1. CREON [Suspect]
     Indication: PANCREATITIS
     Dates: start: 201305
  2. TAMOXIFEN [Concomitant]
     Indication: BREAST LUMP REMOVAL
  3. PRILOSEC [Concomitant]
     Indication: GASTROOESOPHAGEAL REFLUX DISEASE
  4. TRAZADONE [Concomitant]
     Indication: INSOMNIA

REACTIONS (1)
  - Rash pruritic [Not Recovered/Not Resolved]
